FAERS Safety Report 12250210 (Version 2)
Quarter: 2016Q2

REPORT INFORMATION
  Report Type: Spontaneous
  Country: US (occurrence: US)
  Receive Date: 20160408
  Receipt Date: 20160415
  Transmission Date: 20160815
  Serious: Yes (Hospitalization)
  Sender: FDA-Public Use
  Company Number: US-DYAX CORP.-2016DX000102

PATIENT
  Age: 42 Year
  Sex: Female
  Weight: 134.84 kg

DRUGS (2)
  1. KALBITOR [Suspect]
     Active Substance: ECALLANTIDE
     Route: 065
  2. KALBITOR [Suspect]
     Active Substance: ECALLANTIDE
     Indication: HEREDITARY ANGIOEDEMA
     Route: 065
     Dates: start: 201604, end: 201604

REACTIONS (2)
  - Hereditary angioedema [Recovering/Resolving]
  - Hysterectomy [Recovering/Resolving]

NARRATIVE: CASE EVENT DATE: 201604
